FAERS Safety Report 7448531-4 (Version None)
Quarter: 2011Q2

REPORT INFORMATION
  Report Type: 
  Country: None (occurrence: None)
  Receive Date: 20110429
  Receipt Date: 20110204
  Transmission Date: 20111010
  Serious: No
  Sender: FDA-Public Use
  Company Number: US-ASTRAZENECA-2010SE29128

PATIENT
  Age: 51 Year
  Sex: Female

DRUGS (2)
  1. PRILOSEC [Suspect]
     Route: 048
  2. NEXIUM [Suspect]
     Indication: METAPLASIA
     Route: 048
     Dates: start: 20010101, end: 20100501

REACTIONS (8)
  - HIATUS HERNIA [None]
  - THROAT IRRITATION [None]
  - DYSPEPSIA [None]
  - NIGHTMARE [None]
  - DRUG DOSE OMISSION [None]
  - GASTROOESOPHAGEAL REFLUX DISEASE [None]
  - EROSIVE OESOPHAGITIS [None]
  - DIARRHOEA [None]
